FAERS Safety Report 6795417-4 (Version None)
Quarter: 2010Q2

REPORT INFORMATION
  Report Type: 
  Country: None (occurrence: None)
  Receive Date: 20100625
  Receipt Date: 20100614
  Transmission Date: 20101027
  Serious: Yes (Hospitalization)
  Sender: FDA-Public Use
  Company Number: NZ-JNJFOC-20100604556

PATIENT
  Sex: Female
  Weight: 55 kg

DRUGS (12)
  1. GOLIMUMAB [Suspect]
     Indication: RHEUMATOID ARTHRITIS
     Route: 058
  2. GOLIMUMAB [Suspect]
     Route: 058
  3. PLACEBO [Suspect]
     Indication: RHEUMATOID ARTHRITIS
     Route: 059
  4. COMBIVENT [Concomitant]
     Route: 055
  5. TEMAZEPAM [Concomitant]
     Route: 048
  6. PARACETAMOL [Concomitant]
     Route: 048
  7. FLOXACILLIN SODIUM [Concomitant]
     Route: 048
  8. METHOTREXATE [Concomitant]
     Route: 048
  9. FOLIC ACID [Concomitant]
     Route: 048
  10. LEVOTHYROXINE SODIUM [Concomitant]
  11. VOLTAREN [Concomitant]
  12. OMEPRAZOLE [Concomitant]

REACTIONS (1)
  - PERIORBITAL CELLULITIS [None]
